FAERS Safety Report 13836108 (Version 2)
Quarter: 2017Q4

REPORT INFORMATION
  Report Type: Spontaneous
  Country: FR (occurrence: FR)
  Receive Date: 20170804
  Receipt Date: 20171214
  Transmission Date: 20180320
  Serious: Yes (Disabling, Congenital Anomaly, Other)
  Sender: FDA-Public Use
  Company Number: FR-ABBVIE-17P-056-2062335-00

PATIENT
  Sex: Female

DRUGS (1)
  1. DEPAKINE CHRONO [Suspect]
     Active Substance: VALPROATE SODIUM
     Indication: MATERNAL EXPOSURE TIMING UNSPECIFIED
     Route: 064

REACTIONS (16)
  - Microcephaly [Not Recovered/Not Resolved]
  - Autism spectrum disorder [Not Recovered/Not Resolved]
  - Hypotonia [Not Recovered/Not Resolved]
  - Hypermobility syndrome [Not Recovered/Not Resolved]
  - Congenital pulmonary artery anomaly [Not Recovered/Not Resolved]
  - Kyphosis [Not Recovered/Not Resolved]
  - Foetal exposure during pregnancy [Unknown]
  - Venous thrombosis [Not Recovered/Not Resolved]
  - Scoliosis [Not Recovered/Not Resolved]
  - Trisomy 21 [Not Recovered/Not Resolved]
  - Severe mental retardation [Not Recovered/Not Resolved]
  - Ventricular septal defect [Not Recovered/Not Resolved]
  - Atelectasis [Not Recovered/Not Resolved]
  - Plagiocephaly [Not Recovered/Not Resolved]
  - Atrioventricular septal defect [Not Recovered/Not Resolved]
  - Gastrooesophageal reflux disease [Unknown]
